FAERS Safety Report 21210511 (Version 1)
Quarter: 2022Q3

REPORT INFORMATION
  Report Type: Report from Study
  Country: US (occurrence: US)
  Receive Date: 20220815
  Receipt Date: 20220815
  Transmission Date: 20221027
  Serious: Yes (Hospitalization, Other)
  Sender: FDA-Public Use
  Company Number: US-TAKEDA-2022TUS051086

PATIENT
  Sex: Male

DRUGS (8)
  1. TEDUGLUTIDE [Suspect]
     Active Substance: TEDUGLUTIDE
     Indication: Crohn^s disease
     Dosage: 4.3 MILLIGRAM, QD
     Route: 058
     Dates: start: 20220628, end: 20220713
  2. TEDUGLUTIDE [Suspect]
     Active Substance: TEDUGLUTIDE
     Indication: Crohn^s disease
     Dosage: 4.3 MILLIGRAM, QD
     Route: 058
     Dates: start: 20220628, end: 20220713
  3. TEDUGLUTIDE [Suspect]
     Active Substance: TEDUGLUTIDE
     Indication: Crohn^s disease
     Dosage: 4.3 MILLIGRAM, QD
     Route: 058
     Dates: start: 20220628, end: 20220713
  4. TEDUGLUTIDE [Suspect]
     Active Substance: TEDUGLUTIDE
     Indication: Crohn^s disease
     Dosage: 4.3 MILLIGRAM, QD
     Route: 058
     Dates: start: 20220628, end: 20220713
  5. TEDUGLUTIDE [Suspect]
     Active Substance: TEDUGLUTIDE
     Dosage: 4.32 MILLIGRAM, QD
     Route: 058
     Dates: start: 202206
  6. TEDUGLUTIDE [Suspect]
     Active Substance: TEDUGLUTIDE
     Dosage: 4.32 MILLIGRAM, QD
     Route: 058
     Dates: start: 202206
  7. TEDUGLUTIDE [Suspect]
     Active Substance: TEDUGLUTIDE
     Dosage: 4.32 MILLIGRAM, QD
     Route: 058
     Dates: start: 202206
  8. TEDUGLUTIDE [Suspect]
     Active Substance: TEDUGLUTIDE
     Dosage: 4.32 MILLIGRAM, QD
     Route: 058
     Dates: start: 202206

REACTIONS (2)
  - Intestinal obstruction [Unknown]
  - Coagulopathy [Unknown]
